FAERS Safety Report 19145587 (Version 1)
Quarter: 2021Q2

REPORT INFORMATION
  Report Type: Spontaneous
  Country: US (occurrence: US)
  Receive Date: 20210416
  Receipt Date: 20210416
  Transmission Date: 20210717
  Serious: Yes (Death)
  Sender: FDA-Public Use
  Company Number: None

PATIENT
  Age: 80 Year
  Sex: Male
  Weight: 72.9 kg

DRUGS (17)
  1. ASPIRIN 81 MG CHEWABLE TABLET [Concomitant]
     Dates: start: 20210314, end: 20210416
  2. PANTOPRAZOLE 40 MG [Concomitant]
     Active Substance: PANTOPRAZOLE SODIUM
     Dates: start: 20210314, end: 20210416
  3. VITAMIN C 500 MG TABLET [Concomitant]
     Dates: start: 20210323, end: 20210416
  4. TAMSULOSIN 0.4 MG CAPSULE [Concomitant]
     Active Substance: TAMSULOSIN HYDROCHLORIDE
     Dates: start: 20210314, end: 20210416
  5. BALANCED B?100 COMPLEX 100 MG [Concomitant]
     Dates: start: 20210323, end: 20210416
  6. LEVETIRACETAM 500 MG TABLET [Concomitant]
     Dates: start: 20210326, end: 20210416
  7. ATORVASTATIN 80 MG TABLE [Concomitant]
     Dates: start: 20210314, end: 20210416
  8. LISINOPRIL 5 MG TABLET [Concomitant]
     Active Substance: LISINOPRIL
     Dates: start: 20210314, end: 20210416
  9. ACETAMINOPHEN 325 MG TABLET [Concomitant]
     Dates: start: 20210413, end: 20210416
  10. SUPLENA 8 OZ PO  BID [Concomitant]
     Dates: start: 20210326, end: 20210416
  11. PLAVIX 75 MG TABLET [Concomitant]
     Dates: start: 20210314, end: 20210416
  12. METOPROLOL SUCCINATE ER 50 MG [Concomitant]
     Active Substance: METOPROLOL SUCCINATE
     Dates: start: 20210314, end: 20210416
  13. DONEPEZIL 10 MG TABLET [Concomitant]
     Dates: start: 20210314, end: 20210416
  14. BAMLANIVIMAB. [Suspect]
     Active Substance: BAMLANIVIMAB
     Indication: COVID-19
     Dates: start: 20210414, end: 20210414
  15. ROBITUSSIN COUGH AND COLD CF [Concomitant]
     Active Substance: DEXTROMETHORPHAN HYDROBROMIDE\GUAIFENESIN\PHENYLEPHRINE HYDROCHLORIDE
     Dates: start: 20210413, end: 20210416
  16. FUROSEMIDE 20 MG TABLET [Concomitant]
     Active Substance: FUROSEMIDE
     Dates: start: 20210326, end: 20210416
  17. GLIPIZIDE 5 MG TABLET [Concomitant]
     Active Substance: GLIPIZIDE
     Dates: start: 20210314, end: 20210416

REACTIONS (2)
  - Hypersensitivity [None]
  - Cardio-respiratory arrest [None]

NARRATIVE: CASE EVENT DATE: 20210416
